FAERS Safety Report 24601345 (Version 1)
Quarter: 2024Q4

REPORT INFORMATION
  Report Type: Spontaneous
  Country: US (occurrence: US)
  Receive Date: 20241111
  Receipt Date: 20241111
  Transmission Date: 20250115
  Serious: Yes (Hospitalization, Other)
  Sender: MERCK
  Company Number: US-009507513-2411USA002559

PATIENT
  Age: 52 Year
  Sex: Male

DRUGS (1)
  1. BRIDION [Suspect]
     Active Substance: SUGAMMADEX
     Indication: Anaesthesia reversal
     Dosage: 2 MILLILITER
     Route: 040

REACTIONS (4)
  - Hypotension [Recovered/Resolved]
  - Flushing [Recovered/Resolved]
  - Tryptase increased [Recovered/Resolved]
  - Anaphylactic reaction [Recovered/Resolved]
